FAERS Safety Report 25874429 (Version 1)
Quarter: 2025Q4

REPORT INFORMATION
  Report Type: Spontaneous
  Country: US (occurrence: None)
  Receive Date: 20251002
  Receipt Date: 20251002
  Transmission Date: 20260117
  Serious: Yes (Other)
  Sender: FDA-CTU
  Company Number: None

PATIENT
  Age: 16 Year
  Sex: Female
  Weight: 87 kg

DRUGS (5)
  1. OLANZAPINE [Suspect]
     Active Substance: OLANZAPINE
     Indication: Agitation
     Dosage: FREQUENCY : TWICE A DAY;?
     Route: 048
     Dates: start: 20250425
  2. olanzapine 5mg q12hr PRN [Concomitant]
     Dates: start: 20250425
  3. olanzapine 7.5mg BID [Concomitant]
  4. escitalopram, 20 mg Daily [Concomitant]
  5. cloNIDine, 0.3 mg Daily [Concomitant]

REACTIONS (1)
  - Weight increased [None]

NARRATIVE: CASE EVENT DATE: 20250425
